FAERS Safety Report 6340150-6 (Version None)
Quarter: 2009Q3

REPORT INFORMATION
  Report Type: 
  Country: None (occurrence: None)
  Receive Date: 20090902
  Receipt Date: 20090820
  Transmission Date: 20100115
  Serious: Yes (Death)
  Sender: FDA-Public Use
  Company Number: 2009AL000707

PATIENT
  Sex: Male

DRUGS (41)
  1. DIGOXIN [Suspect]
     Indication: HEART RATE IRREGULAR
     Dosage: PO; DIGOXIN 0.25MG DAILY PO
     Route: 048
  2. COREG [Concomitant]
  3. COUMADIN [Concomitant]
  4. NEXIUM [Concomitant]
  5. NABUMETONE [Concomitant]
  6. FOLIC ACID [Concomitant]
  7. ARAVA [Concomitant]
  8. LORAZEPAM [Concomitant]
  9. METHOTREXATE [Concomitant]
  10. LOMOTIL [Concomitant]
  11. DOXICYCLINE [Concomitant]
  12. LASIX [Concomitant]
  13. OXYGEN [Concomitant]
  14. JANTOVEN [Concomitant]
  15. NITROGLYCERIN [Concomitant]
  16. MOBIC [Concomitant]
  17. HYDROCODONE BITARTRATE [Concomitant]
  18. ALEVE [Concomitant]
  19. LIPITOR [Concomitant]
  20. POTASSIUM CHLORIDE [Concomitant]
  21. NABUMETONE [Concomitant]
  22. LASIX [Concomitant]
  23. PREDNISONE [Concomitant]
  24. NITROSTAT [Concomitant]
  25. PANNAZ [Concomitant]
  26. DOCUSTATE [Concomitant]
  27. BIDEX [Concomitant]
  28. WARFARIN SODIUM [Concomitant]
  29. CIPROFLAXACIN [Concomitant]
  30. FOLBEE [Concomitant]
  31. LEVAQUIN [Concomitant]
  32. AMOXIC/CLAV [Concomitant]
  33. LORATADINE [Concomitant]
  34. AVELOX [Concomitant]
  35. DEXAMETHASONE TAB [Concomitant]
  36. PROMETHAZINE [Concomitant]
  37. ONDANSETRON [Concomitant]
  38. FUROSEMIDE [Concomitant]
  39. CARVEDILOL [Concomitant]
  40. GRIS-PEG [Concomitant]
  41. MEXILETINE HYDROCHLORIDE [Concomitant]

REACTIONS (22)
  - ABDOMINAL DISTENSION [None]
  - ACUTE PULMONARY OEDEMA [None]
  - ANXIETY [None]
  - ASTHENIA [None]
  - CHRONIC OBSTRUCTIVE PULMONARY DISEASE [None]
  - ECONOMIC PROBLEM [None]
  - FLUID OVERLOAD [None]
  - HEADACHE [None]
  - HEMIPARESIS [None]
  - HYPERHIDROSIS [None]
  - JAUNDICE [None]
  - LUNG ADENOCARCINOMA [None]
  - MENTAL DISORDER [None]
  - MULTIPLE INJURIES [None]
  - MYOCARDIAL INFARCTION [None]
  - NAUSEA [None]
  - PAIN [None]
  - RENAL FAILURE [None]
  - RHINORRHOEA [None]
  - SUPRAVENTRICULAR EXTRASYSTOLES [None]
  - THERAPEUTIC AGENT TOXICITY [None]
  - UNEVALUABLE EVENT [None]
